FAERS Safety Report 19145770 (Version 2)
Quarter: 2021Q2

REPORT INFORMATION
  Report Type: Other
  Country: US (occurrence: US)
  Receive Date: 20210416
  Receipt Date: 20210609
  Transmission Date: 20210717
  Serious: Yes (Hospitalization, Other)
  Sender: FDA-Public Use
  Company Number: US-ROCHE-2782619

PATIENT
  Age: 41 Year
  Sex: Male
  Weight: 116.22 kg

DRUGS (13)
  1. XOLAIR [Suspect]
     Active Substance: OMALIZUMAB
     Indication: IDIOPATHIC URTICARIA
     Dosage: ONGOING: YES
     Route: 058
     Dates: start: 2014
  2. XOLAIR [Suspect]
     Active Substance: OMALIZUMAB
     Indication: URTICARIA CHRONIC
  3. DOXEPIN [Concomitant]
     Active Substance: DOXEPIN
     Route: 048
  4. BENADRYL [Concomitant]
     Active Substance: DIPHENHYDRAMINE HYDROCHLORIDE
  5. CYCLOSPORINE. [Concomitant]
     Active Substance: CYCLOSPORINE
     Indication: MAST CELL ACTIVATION SYNDROME
     Route: 048
     Dates: start: 201501
  6. PREDNISONE. [Suspect]
     Active Substance: PREDNISONE
     Indication: MAST CELL ACTIVATION SYNDROME
     Route: 048
  7. ALPRAZOLAM. [Concomitant]
     Active Substance: ALPRAZOLAM
     Route: 048
  8. NYSTATINE [Concomitant]
     Active Substance: NYSTATIN
  9. FORTEO [Concomitant]
     Active Substance: TERIPARATIDE
     Dosage: SHOT IN STOMACH
     Dates: start: 202001
  10. XOLAIR [Suspect]
     Active Substance: OMALIZUMAB
     Indication: ASTHMA
     Route: 058
  11. PREDNISONE. [Suspect]
     Active Substance: PREDNISONE
     Indication: MAST CELL ACTIVATION SYNDROME
     Route: 065
  12. ZYRTECSET [Concomitant]
     Active Substance: CETIRIZINE HYDROCHLORIDE
     Route: 048
  13. ASPIRIN. [Concomitant]
     Active Substance: ASPIRIN

REACTIONS (5)
  - Spinal compression fracture [Not Recovered/Not Resolved]
  - Pathological fracture [Unknown]
  - Rib fracture [Unknown]
  - Anaphylactic reaction [Unknown]
  - Autoimmune disorder [Not Recovered/Not Resolved]

NARRATIVE: CASE EVENT DATE: 2019
